FAERS Safety Report 9030668 (Version 1)
Quarter: 2013Q1

REPORT INFORMATION
  Report Type: Report from Study
  Country: GB (occurrence: GB)
  Receive Date: 20130123
  Receipt Date: 20130123
  Transmission Date: 20140127
  Serious: Yes (Other)
  Sender: FDA-Public Use
  Company Number: GB-009507513-1301GBR009312

PATIENT
  Age: 61 Year
  Sex: Male
  Weight: 91.2 kg

DRUGS (5)
  1. TEMOZOLOMIDE [Suspect]
     Indication: GLIOBLASTOMA
     Dosage: 150 MG/M2, TOTAL DOSE OF 320 MG
     Route: 048
     Dates: start: 20130104, end: 20130104
  2. STUDY DRUG (UNSPECIFIED) [Suspect]
     Indication: GLIOBLASTOMA
     Dosage: 4.96 MG, CYCLE 1
     Route: 023
     Dates: start: 20121205
  3. STUDY DRUG (UNSPECIFIED) [Suspect]
     Dosage: 4.96 MG, CYCLE 6
     Route: 023
     Dates: start: 20121227
  4. GRANULOCYTE-MACROPHAGE COLONY-STIMULATING FACTOR [Suspect]
     Indication: GLIOBLASTOMA
     Dosage: 75 MICROGRAM, CYCLE 1
     Route: 023
     Dates: start: 20121205
  5. GRANULOCYTE-MACROPHAGE COLONY-STIMULATING FACTOR [Suspect]
     Dosage: 75 MICROGRAM, CYCLE 6
     Route: 023
     Dates: start: 20121227

REACTIONS (2)
  - Urticaria [Recovering/Resolving]
  - Anaphylactic reaction [Recovering/Resolving]
